FAERS Safety Report 8239979-9 (Version None)
Quarter: 2012Q1

REPORT INFORMATION
  Report Type: 
  Country: None (occurrence: None)
  Receive Date: 20120328
  Receipt Date: 20120313
  Transmission Date: 20120608
  Serious: Yes (Hospitalization)
  Sender: FDA-Public Use
  Company Number: AT-CELGENEUS-009-50794-12022821

PATIENT
  Age: 83 Year
  Sex: Female
  Weight: 74 kg

DRUGS (2)
  1. VIDAZA [Suspect]
     Dosage: 150 MILLIGRAM
     Route: 058
     Dates: start: 20100213, end: 20100216
  2. GRANISETRON [Concomitant]
     Route: 065

REACTIONS (2)
  - CONSTIPATION [None]
  - ENTEROCOLITIS HAEMORRHAGIC [None]
